FAERS Safety Report 20063440 (Version 1)
Quarter: 2021Q4

REPORT INFORMATION
  Report Type: Report from Study
  Country: BR (occurrence: BR)
  Receive Date: 20211112
  Receipt Date: 20211112
  Transmission Date: 20220303
  Serious: Yes (Hospitalization, Other)
  Sender: FDA-Public Use
  Company Number: BR-JNJFOC-20211113756

PATIENT
  Age: 15 Year
  Sex: Male
  Weight: 52 kg

DRUGS (1)
  1. REMICADE [Suspect]
     Active Substance: INFLIXIMAB
     Indication: Crohn^s disease
     Route: 042

REACTIONS (3)
  - Postoperative wound infection [Unknown]
  - Crohn^s disease [Not Recovered/Not Resolved]
  - Fistula [Unknown]
